FAERS Safety Report 9631694 (Version 1)
Quarter: 2013Q4

REPORT INFORMATION
  Report Type: Spontaneous
  Country: US (occurrence: None)
  Receive Date: 20131017
  Receipt Date: 20131017
  Transmission Date: 20140711
  Serious: No
  Sender: FDA-Public Use
  Company Number: None

PATIENT
  Sex: Male

DRUGS (1)
  1. HUMIRA 40MG ABBVIE [Suspect]
     Indication: CROHN^S DISEASE
     Dosage: 40MG, QW, SQ
     Dates: start: 2007

REACTIONS (2)
  - Mental status changes [None]
  - Cognitive disorder [None]
